FAERS Safety Report 5909570-5 (Version None)
Quarter: 2008Q4

REPORT INFORMATION
  Report Type: 
  Country: None (occurrence: None)
  Receive Date: 20081002
  Receipt Date: 20080927
  Transmission Date: 20090506
  Serious: Yes (Other)
  Sender: FDA-Public Use
  Company Number: 2008SP014222

PATIENT
  Age: 48 Year
  Sex: Female
  Weight: 71.6683 kg

DRUGS (2)
  1. PEG-INTRON [Suspect]
     Indication: HEPATITIS C
     Dosage: ;SC
     Route: 058
     Dates: start: 20080307, end: 20080814
  2. RIBAVIRIN [Suspect]
     Indication: HEPATITIS C
     Dosage: ;PO
     Route: 048
     Dates: start: 20080307, end: 20080814

REACTIONS (21)
  - ALOPECIA [None]
  - ANAEMIA [None]
  - ANOREXIA [None]
  - ANXIETY [None]
  - DEPRESSION [None]
  - DISTURBANCE IN ATTENTION [None]
  - DIZZINESS [None]
  - DYSGEUSIA [None]
  - DYSPNOEA [None]
  - DYSURIA [None]
  - FAMILY STRESS [None]
  - FATIGUE [None]
  - FEELING HOT [None]
  - HEART RATE INCREASED [None]
  - INFECTION [None]
  - LOSS OF EMPLOYMENT [None]
  - MEMORY IMPAIRMENT [None]
  - SCRATCH [None]
  - SWELLING [None]
  - TACHYCARDIA [None]
  - WEIGHT DECREASED [None]
